FAERS Safety Report 15998148 (Version 2)
Quarter: 2019Q2

REPORT INFORMATION
  Report Type: Spontaneous
  Country: GR (occurrence: GR)
  Receive Date: 20190223
  Receipt Date: 20190401
  Transmission Date: 20190711
  Serious: Yes (Hospitalization)
  Sender: FDA-Public Use
  Company Number: GR-ROCHE-2270667

PATIENT
  Age: 71 Year
  Sex: Female

DRUGS (2)
  1. ACTILYSE [Suspect]
     Active Substance: ALTEPLASE
     Indication: THROMBOLYSIS
  2. ACTILYSE [Suspect]
     Active Substance: ALTEPLASE
     Indication: ISCHAEMIC STROKE
     Route: 042

REACTIONS (1)
  - Partial seizures with secondary generalisation [Recovered/Resolved]
